FAERS Safety Report 18658723 (Version 4)
Quarter: 2021Q2

REPORT INFORMATION
  Report Type: Spontaneous
  Country: GB (occurrence: GB)
  Receive Date: 20201224
  Receipt Date: 20210625
  Transmission Date: 20210717
  Serious: Yes (Other)
  Sender: FDA-Public Use
  Company Number: GB-BIOVITRUM-2020GB7885

PATIENT
  Age: 72 Year
  Sex: Female

DRUGS (44)
  1. ORFADIN [Suspect]
     Active Substance: NITISINONE
     Dates: start: 2018
  2. ASPIRIN. [Concomitant]
     Active Substance: ASPIRIN
     Dates: start: 2013
  3. ASPIRIN. [Concomitant]
     Active Substance: ASPIRIN
     Dates: start: 2016
  4. ASPIRIN. [Concomitant]
     Active Substance: ASPIRIN
     Dates: start: 2017
  5. OMEPRAZOLE. [Concomitant]
     Active Substance: OMEPRAZOLE
     Dates: start: 2012
  6. SIMVASTATIN. [Concomitant]
     Active Substance: SIMVASTATIN
     Dates: start: 2012
  7. SIMVASTATIN. [Concomitant]
     Active Substance: SIMVASTATIN
     Dates: start: 2015
  8. SIMVASTATIN. [Concomitant]
     Active Substance: SIMVASTATIN
     Dates: start: 2017
  9. ACCRETE D3 [Concomitant]
     Active Substance: CALCIUM CARBONATE\CHOLECALCIFEROL
     Dates: start: 2016
  10. MULTI VIT [Concomitant]
     Active Substance: VITAMINS
     Dates: start: 2016
  11. ORFADIN [Suspect]
     Active Substance: NITISINONE
     Dates: start: 2013
  12. ASPIRIN. [Concomitant]
     Active Substance: ASPIRIN
     Dates: start: 2012
  13. SIMVASTATIN. [Concomitant]
     Active Substance: SIMVASTATIN
     Dates: start: 2016
  14. ACCRETE D3 [Concomitant]
     Active Substance: CALCIUM CARBONATE\CHOLECALCIFEROL
     Dates: start: 2013
  15. DENOSUMAB [Concomitant]
     Active Substance: DENOSUMAB
     Dosage: 6 MONTHLY INTERVALS
     Dates: start: 2016
  16. DENOSUMAB [Concomitant]
     Active Substance: DENOSUMAB
     Dates: start: 2017
  17. ORFADIN [Suspect]
     Active Substance: NITISINONE
     Dates: start: 2019
  18. ASPIRIN. [Concomitant]
     Active Substance: ASPIRIN
     Dates: start: 2014
  19. SIMVASTATIN. [Concomitant]
     Active Substance: SIMVASTATIN
     Dates: start: 2019
  20. OMEPRAZOLE. [Concomitant]
     Active Substance: OMEPRAZOLE
     Dates: start: 2015
  21. DENOSUMAB [Concomitant]
     Active Substance: DENOSUMAB
     Dates: start: 2018
  22. DENOSUMAB [Concomitant]
     Active Substance: DENOSUMAB
     Dates: start: 2019
  23. ALENDRONIC ACID [Concomitant]
     Active Substance: ALENDRONIC ACID
  24. OMEPRAZOLE. [Concomitant]
     Active Substance: OMEPRAZOLE
     Dates: start: 2013
  25. OMEPRAZOLE. [Concomitant]
     Active Substance: OMEPRAZOLE
     Dates: start: 2014
  26. OMEPRAZOLE. [Concomitant]
     Active Substance: OMEPRAZOLE
     Dates: start: 2017
  27. ACCRETE D3 [Concomitant]
     Active Substance: CALCIUM CARBONATE\CHOLECALCIFEROL
     Dates: start: 2018
  28. ORFADIN [Suspect]
     Active Substance: NITISINONE
     Indication: ALKAPTONURIA
     Dates: start: 2012
  29. ORFADIN [Suspect]
     Active Substance: NITISINONE
     Dates: start: 2014
  30. ASPIRIN. [Concomitant]
     Active Substance: ASPIRIN
     Dates: start: 2015
  31. OMEPRAZOLE. [Concomitant]
     Active Substance: OMEPRAZOLE
     Dates: start: 2016
  32. SIMVASTATIN. [Concomitant]
     Active Substance: SIMVASTATIN
     Dates: start: 2018
  33. ACCRETE D3 [Concomitant]
     Active Substance: CALCIUM CARBONATE\CHOLECALCIFEROL
     Dates: start: 2014
  34. ACCRETE D3 [Concomitant]
     Active Substance: CALCIUM CARBONATE\CHOLECALCIFEROL
     Dates: start: 2017
  35. MULTI VIT [Concomitant]
     Active Substance: VITAMINS
     Dates: start: 2014
  36. MULTI VIT [Concomitant]
     Active Substance: VITAMINS
     Dates: start: 2019
  37. ORFADIN [Suspect]
     Active Substance: NITISINONE
     Dates: start: 2015
  38. ORFADIN [Suspect]
     Active Substance: NITISINONE
     Dates: start: 2016
  39. ACCRETE D3 [Concomitant]
     Active Substance: CALCIUM CARBONATE\CHOLECALCIFEROL
     Dates: start: 2015
  40. PARACETAMOL [Concomitant]
     Active Substance: ACETAMINOPHEN
     Dates: start: 2019
  41. ORFADIN [Suspect]
     Active Substance: NITISINONE
     Dates: start: 2017
  42. SIMVASTATIN. [Concomitant]
     Active Substance: SIMVASTATIN
     Dates: start: 2013
  43. SIMVASTATIN. [Concomitant]
     Active Substance: SIMVASTATIN
     Dates: start: 2014
  44. ACCRETE D3 [Concomitant]
     Active Substance: CALCIUM CARBONATE\CHOLECALCIFEROL
     Dates: start: 2019

REACTIONS (4)
  - Cataract [Unknown]
  - Lenticular opacities [Not Recovered/Not Resolved]
  - Conjunctival oedema [Not Recovered/Not Resolved]
  - Amino acid level increased [Not Recovered/Not Resolved]

NARRATIVE: CASE EVENT DATE: 2012
